FAERS Safety Report 24638772 (Version 2)
Quarter: 2025Q2

REPORT INFORMATION
  Report Type: Spontaneous
  Country: US (occurrence: US)
  Receive Date: 20241119
  Receipt Date: 20250506
  Transmission Date: 20250716
  Serious: No
  Sender: PFIZER
  Company Number: US-PFIZER INC-PV202400149588

PATIENT
  Age: 75 Year
  Sex: Male

DRUGS (2)
  1. VYNDAMAX [Suspect]
     Active Substance: TAFAMIDIS
     Indication: Acquired ATTR amyloidosis
     Dosage: ONE 61 MG TAFAMIDIS CAPSULE ORALLY ONCE DAILY IN THE MORNING. QUANTITY #30 CAPSULES (30 DAYS)
     Route: 048
  2. TIKOSYN [Concomitant]
     Active Substance: DOFETILIDE
     Indication: Ventricular extrasystoles
     Dosage: TAKE 1 CAPSULE (500 MCG) BY MOUTH IN THE MORNING AND AT BEDTIME, 60 CAPSULE
     Route: 048

REACTIONS (2)
  - Dizziness [Unknown]
  - Cardiac disorder [Unknown]
